FAERS Safety Report 5134640-1 (Version None)
Quarter: 2006Q4

REPORT INFORMATION
  Report Type: 
  Country: None (occurrence: None)
  Receive Date: 20061025
  Receipt Date: 20060925
  Transmission Date: 20070319
  Serious: Yes (Life-Threatening, Hospitalization)
  Sender: FDA-Public Use
  Company Number: JP-GLAXOSMITHKLINE-B0439718A

PATIENT
  Age: 22 Year
  Sex: Female
  Weight: 58 kg

DRUGS (24)
  1. PAXIL [Suspect]
     Indication: DEPRESSION
     Dosage: 20MG PER DAY
     Route: 048
  2. RISPERDAL [Suspect]
     Indication: DEPRESSION
     Dosage: 1MG PER DAY
     Route: 048
  3. DOGMATYL [Concomitant]
     Indication: DEPRESSION
     Dosage: 200MG FOUR TIMES PER DAY
     Route: 048
  4. DEPAS [Concomitant]
     Indication: DEPRESSION
     Dosage: 2MG FOUR TIMES PER DAY
     Route: 048
     Dates: start: 20051231
  5. HIRNAMIN [Concomitant]
     Indication: DEPRESSION
     Dosage: 5MG PER DAY
     Route: 048
     Dates: start: 20060201
  6. OLMESARTAN MEDOXOMIL [Concomitant]
     Indication: GLOMERULONEPHRITIS PROLIFERATIVE
     Dosage: 10MG PER DAY
     Route: 048
     Dates: start: 20050428
  7. PREDONINE [Concomitant]
     Indication: GLOMERULONEPHRITIS PROLIFERATIVE
     Dosage: 10MG PER DAY
     Route: 048
     Dates: start: 20050406
  8. SULPIRIDE [Concomitant]
     Indication: DEPRESSION
     Route: 048
     Dates: start: 20060123
  9. LENDEM [Concomitant]
     Indication: DEPRESSION
     Route: 048
     Dates: start: 20060123
  10. NELBON [Concomitant]
     Indication: DEPRESSION
     Route: 048
     Dates: start: 20060201
  11. DORAL [Concomitant]
     Indication: DEPRESSION
     Route: 048
  12. COMELIAN [Concomitant]
     Indication: GLOMERULONEPHRITIS PROLIFERATIVE
     Route: 048
     Dates: start: 20040501, end: 20060513
  13. ZOPICLONE [Concomitant]
  14. LEVOMEPROMAZINE [Concomitant]
  15. PREDNISOLONE [Concomitant]
  16. THEOPHYLLINE [Concomitant]
  17. EPINASTINE HYDROCHLORIDE [Concomitant]
  18. EMEDASTINE DIFUMARATE [Concomitant]
  19. AZELASTINE HCL [Concomitant]
  20. CLARITHROMYCIN [Concomitant]
  21. CEFPODOXIMPROXETIL [Concomitant]
  22. LOXOPROFEN SODIUM [Concomitant]
  23. ASPIRIN [Concomitant]
  24. IBUPROFEN [Concomitant]

REACTIONS (24)
  - ASPIRATION [None]
  - BLOOD PH DECREASED [None]
  - BLOOD PRESSURE DIASTOLIC DECREASED [None]
  - BODY TEMPERATURE DECREASED [None]
  - C-REACTIVE PROTEIN INCREASED [None]
  - COMA [None]
  - DISTURBANCE IN ATTENTION [None]
  - EDUCATIONAL PROBLEM [None]
  - GALACTORRHOEA [None]
  - HEADACHE [None]
  - HEART RATE INCREASED [None]
  - INCONTINENCE [None]
  - INCORRECT DOSE ADMINISTERED [None]
  - INCREASED APPETITE [None]
  - INTENTIONAL SELF-INJURY [None]
  - IRRITABILITY [None]
  - MENSTRUAL DISORDER [None]
  - PNEUMONIA ASPIRATION [None]
  - PNEUMONITIS [None]
  - PRODUCTIVE COUGH [None]
  - PYREXIA [None]
  - SUICIDE ATTEMPT [None]
  - VOMITING [None]
  - WHITE BLOOD CELL COUNT INCREASED [None]
